FAERS Safety Report 11890245 (Version 1)
Quarter: 2016Q1

REPORT INFORMATION
  Report Type: Spontaneous
  Country: US (occurrence: US)
  Receive Date: 20160105
  Receipt Date: 20160105
  Transmission Date: 20160526
  Serious: No
  Sender: FDA-Public Use
  Company Number: US-GLAXOSMITHKLINE-US2015GSK183153

PATIENT

DRUGS (4)
  1. LAMICTAL [Concomitant]
     Active Substance: LAMOTRIGINE
  2. EPITOL [Suspect]
     Active Substance: CARBAMAZEPINE
     Dosage: 400 MG, BID
  3. TEGRETOL XR [Concomitant]
     Active Substance: CARBAMAZEPINE
  4. LAMOTRIGINE TABLET [Suspect]
     Active Substance: LAMOTRIGINE
     Indication: SEIZURE
     Dosage: 225 MG, BID

REACTIONS (8)
  - Impaired driving ability [Unknown]
  - Facial bones fracture [Unknown]
  - Therapeutic response changed [Unknown]
  - Fall [Unknown]
  - Injury [Unknown]
  - Drug ineffective [Unknown]
  - Product substitution issue [Unknown]
  - Impaired work ability [Unknown]
